FAERS Safety Report 7877774-0 (Version None)
Quarter: 2011Q4

REPORT INFORMATION
  Report Type: 
  Country: None (occurrence: None)
  Receive Date: 20111031
  Receipt Date: 20111031
  Transmission Date: 20120403
  Serious: Yes (Hospitalization)
  Sender: FDA-Public Use
  Company Number: None

PATIENT
  Sex: Female

DRUGS (1)
  1. ALLERGENIC EXTRACT C. ALBICANS [Suspect]
     Indication: SKIN PAPILLOMA
     Dosage: 0.15CC
     Route: 026
     Dates: start: 20110913, end: 20111007

REACTIONS (1)
  - OEDEMA PERIPHERAL [None]
